FAERS Safety Report 8274344 (Version 3)
Quarter: 2012Q4

REPORT INFORMATION
  Report Type: 
  Country: GB (occurrence: GB)
  Receive Date: 20111205
  Receipt Date: 20121115
  Transmission Date: 20130627
  Serious: Yes (Other)
  Sender: FDA-Public Use
  Company Number: GB-US-EMD SERONO, INC.-7090421

PATIENT
  Sex: Female

DRUGS (2)
  1. REBIF [Suspect]
     Indication: MULTIPLE SCLEROSIS
     Dates: start: 200411
  2. REBIF [Suspect]
     Dates: start: 201206

REACTIONS (2)
  - Pulmonary sarcoidosis [Unknown]
  - Demyelination [Unknown]
